FAERS Safety Report 8828837 (Version 3)
Quarter: 2013Q1

REPORT INFORMATION
  Report Type: Report from Study
  Country: CA (occurrence: CA)
  Receive Date: 20121008
  Receipt Date: 20130308
  Transmission Date: 20140127
  Serious: Yes (Other)
  Sender: FDA-Public Use
  Company Number: CA-ROCHE-CID000000002173273

PATIENT
  Sex: Male
  Weight: 89 kg

DRUGS (9)
  1. ACTEMRA [Suspect]
     Indication: RHEUMATOID ARTHRITIS
     Route: 042
     Dates: start: 20120111, end: 20130305
  2. ISONIAZIDE [Concomitant]
  3. VITAMIN B6 [Concomitant]
  4. FISH OIL [Concomitant]
  5. TYLENOL [Concomitant]
     Route: 065
  6. IBUPROFEN [Concomitant]
     Route: 065
  7. METHOTREXATE [Concomitant]
     Route: 065
  8. FOLIC ACID [Concomitant]
  9. CORTISONE [Concomitant]
     Route: 058

REACTIONS (3)
  - Musculoskeletal pain [Recovering/Resolving]
  - Abdominal distension [Not Recovered/Not Resolved]
  - Diarrhoea [Not Recovered/Not Resolved]
